FAERS Safety Report 6519690-2 (Version None)
Quarter: 2009Q4

REPORT INFORMATION
  Report Type: 
  Country: None (occurrence: None)
  Receive Date: 20091228
  Receipt Date: 20091215
  Transmission Date: 20100525
  Serious: Yes (Other)
  Sender: FDA-Public Use
  Company Number: US-PFIZER INC-2005141885

PATIENT
  Sex: Male
  Weight: 99.8 kg

DRUGS (8)
  1. GLUCOTROL XL [Interacting]
     Indication: DIABETES MELLITUS
     Dosage: 10 MG, 1X/DAY
     Route: 048
  2. GLUCOTROL XL [Interacting]
     Dosage: 5 MG, 2X/DAY
     Route: 048
  3. GLUCOTROL [Suspect]
  4. ACTOS [Interacting]
     Indication: DIABETES MELLITUS
     Route: 048
  5. LANTUS [Suspect]
  6. METFORMIN [Concomitant]
     Route: 048
  7. PROGESTERONE [Concomitant]
     Route: 065
  8. CHROMIUM PICOLINATE [Concomitant]
     Route: 065

REACTIONS (11)
  - BEDRIDDEN [None]
  - BLOOD GLUCOSE INCREASED [None]
  - DRUG INEFFECTIVE [None]
  - DRUG INTERACTION [None]
  - DRUG INTOLERANCE [None]
  - DYSPNOEA [None]
  - EAR HAEMORRHAGE [None]
  - IMMUNE SYSTEM DISORDER [None]
  - JAW DISORDER [None]
  - MUSCULAR WEAKNESS [None]
  - NASOPHARYNGITIS [None]
